FAERS Safety Report 8772615 (Version 6)
Quarter: 2013Q1

REPORT INFORMATION
  Report Type: Spontaneous
  Country: US (occurrence: US)
  Receive Date: 20120905
  Receipt Date: 20130325
  Transmission Date: 20140127
  Serious: Yes (Hospitalization, Disabling, Other)
  Sender: FDA-Public Use
  Company Number: US-009507513-1209USA000855

PATIENT
  Sex: Female
  Weight: 64.4 kg

DRUGS (12)
  1. FOSAMAX [Suspect]
     Indication: OSTEOPOROSIS
     Dosage: UNK
     Route: 048
     Dates: start: 2000, end: 2008
  2. FOSAMAX [Suspect]
     Indication: OSTEOPENIA
     Dosage: 5 MG, QD
     Route: 048
     Dates: start: 20000418, end: 20030423
  3. FOSAMAX [Suspect]
     Dosage: 70 MG, QW
     Route: 048
     Dates: start: 20030423, end: 20110307
  4. CALCIUM (UNSPECIFIED) [Concomitant]
     Indication: BONE DENSITY DECREASED
     Dosage: 500 MG, BID
     Dates: start: 1999
  5. FOSAMAX [Suspect]
     Indication: OSTEOPOROSIS
     Dosage: 70 MG, QW
     Route: 048
  6. FOSAMAX [Suspect]
     Indication: OSTEOPENIA
  7. LESCOL [Concomitant]
     Dosage: 20 MG, HS
  8. ECOTRIN [Concomitant]
     Dosage: 325 MG, QD
  9. VITAMIN E [Concomitant]
     Dosage: 400 MG, QD
  10. VITAMINS (UNSPECIFIED) [Concomitant]
     Dosage: UNK, QD
  11. BAYCOL [Concomitant]
     Dosage: 0.3 MG, UNK
  12. CELEBREX [Concomitant]
     Dosage: 200 MG, QD

REACTIONS (44)
  - Open reduction of fracture [Unknown]
  - Femur fracture [Not Recovered/Not Resolved]
  - Intramedullary rod insertion [Unknown]
  - Hip fracture [Not Recovered/Not Resolved]
  - Osteoporosis [Not Recovered/Not Resolved]
  - Femur fracture [Not Recovered/Not Resolved]
  - Low turnover osteopathy [Not Recovered/Not Resolved]
  - Anaemia [Unknown]
  - Tonsillectomy [Unknown]
  - Cyst removal [Unknown]
  - Transfusion [Unknown]
  - Anaemia postoperative [Unknown]
  - Anaemia postoperative [Unknown]
  - Stress fracture [Not Recovered/Not Resolved]
  - Eye operation [Unknown]
  - Femur fracture [Not Recovered/Not Resolved]
  - Constipation [Unknown]
  - Fall [Unknown]
  - Stress fracture [Unknown]
  - Vitamin D deficiency [Unknown]
  - Hypertension [Unknown]
  - Adverse event [Unknown]
  - Fall [Unknown]
  - Osteoarthritis [Unknown]
  - Cardiovascular disorder [Unknown]
  - Skin disorder [Unknown]
  - Arthropathy [Unknown]
  - Neuropathy peripheral [Unknown]
  - Diarrhoea infectious [Unknown]
  - Decreased appetite [Unknown]
  - Sleep disorder [Unknown]
  - Osteoarthritis [Unknown]
  - Bundle branch block left [Unknown]
  - Ventricular tachycardia [Unknown]
  - Synovial cyst [Unknown]
  - Biopsy breast [Unknown]
  - Foot fracture [Unknown]
  - Depressed mood [Recovered/Resolved]
  - Blood potassium decreased [Unknown]
  - Arthropathy [Unknown]
  - Asthenia [Unknown]
  - Nausea [Unknown]
  - Gastrooesophageal reflux disease [Unknown]
  - Dyspepsia [Unknown]
